FAERS Safety Report 7517249-1 (Version None)
Quarter: 2011Q2

REPORT INFORMATION
  Report Type: 
  Country: None (occurrence: None)
  Receive Date: 20110601
  Receipt Date: 20110526
  Transmission Date: 20111010
  Serious: Yes (Hospitalization, Other)
  Sender: FDA-Public Use
  Company Number: US-PFIZER INC-2010009688

PATIENT
  Sex: Male
  Weight: 68.027 kg

DRUGS (11)
  1. REGLAN [Concomitant]
     Indication: NAUSEA
     Dosage: UNK
  2. CHANTIX [Suspect]
     Dosage: 0.5 MG, UNK
     Route: 048
  3. METHADONE [Concomitant]
     Indication: PAIN
     Dosage: UNK
  4. XANAX [Concomitant]
     Indication: SEDATIVE THERAPY
     Dosage: 1 MG, UNK
     Route: 048
  5. OMEPRAZOLE [Concomitant]
     Indication: GASTROOESOPHAGEAL REFLUX DISEASE
     Dosage: UNK
  6. ACETYLSALICYLIC ACID [Concomitant]
     Indication: CARDIAC DISORDER
     Dosage: 81 MG, UNK
  7. XANAX [Concomitant]
     Indication: INSOMNIA
  8. PANCREASE [Concomitant]
     Indication: PANCREATITIS
     Dosage: UNK
  9. CHANTIX [Suspect]
     Indication: SMOKING CESSATION THERAPY
     Dosage: 0.5 MG, 1X/DAY
     Route: 048
     Dates: start: 20100120
  10. INSULIN [Concomitant]
     Indication: DIABETES MELLITUS
     Dosage: UNK
  11. CHANTIX [Suspect]
     Dosage: UNK
     Route: 048
     Dates: start: 20110426

REACTIONS (7)
  - BACTERIAL INFECTION [None]
  - WHITE BLOOD CELL COUNT INCREASED [None]
  - STRESS [None]
  - FLATULENCE [None]
  - ABNORMAL DREAMS [None]
  - DRUG INEFFECTIVE [None]
  - GALLBLADDER DISORDER [None]
